FAERS Safety Report 17956918 (Version 1)
Quarter: 2020Q2

REPORT INFORMATION
  Report Type: Report from Study
  Country: ES (occurrence: ES)
  Receive Date: 20200629
  Receipt Date: 20200629
  Transmission Date: 20200714
  Serious: Yes (Other)
  Sender: FDA-Public Use
  Company Number: ES-PFIZER INC-2020245906

PATIENT
  Age: 51 Year
  Sex: Female
  Weight: 63 kg

DRUGS (6)
  1. 5-FLUOROURACIL [FLUOROURACIL] [Suspect]
     Active Substance: FLUOROURACIL
     Indication: COLORECTAL CANCER
     Dosage: 660 MG EVERY 2 WEEKS
     Route: 040
     Dates: start: 20191204
  2. DOXYCYCLINE. [Concomitant]
     Active Substance: DOXYCYCLINE
     Indication: RASH
     Dosage: 10 MG, 1X/DAY
     Route: 048
     Dates: start: 20191205
  3. FOLINIC ACID [Concomitant]
     Active Substance: LEUCOVORIN
     Indication: COLORECTAL CANCER
     Dosage: 660 MG EVERY 2 WEEKS
     Route: 042
     Dates: start: 20191204
  4. 5-FLUOROURACIL [FLUOROURACIL] [Suspect]
     Active Substance: FLUOROURACIL
     Dosage: 3900 MG EVERY 2 WEEKS
     Route: 042
     Dates: start: 20191204
  5. PANITUMUMAB [Suspect]
     Active Substance: PANITUMUMAB
     Indication: COLORECTAL CANCER
     Dosage: 390 MG EVERY 2 WEEKS
     Route: 042
     Dates: start: 20191204
  6. OXALIPLATIN. [Suspect]
     Active Substance: OXALIPLATIN
     Indication: COLORECTAL CANCER
     Dosage: 140 MG EVERY 2 WEEKS
     Route: 042
     Dates: start: 20191204

REACTIONS (4)
  - Rash [Not Recovered/Not Resolved]
  - Hypertrichosis [Not Recovered/Not Resolved]
  - Growth of eyelashes [Not Recovered/Not Resolved]
  - Thrombocytopenia [Not Recovered/Not Resolved]

NARRATIVE: CASE EVENT DATE: 20200608
